FAERS Safety Report 9692410 (Version 1)
Quarter: 2013Q4

REPORT INFORMATION
  Report Type: Spontaneous
  Country: US (occurrence: US)
  Receive Date: 20131118
  Receipt Date: 20131118
  Transmission Date: 20140711
  Serious: No
  Sender: FDA-Public Use
  Company Number: US-PFIZER INC-2013326786

PATIENT
  Age: 39 Year
  Sex: Female
  Weight: 66.6 kg

DRUGS (4)
  1. PRISTIQ [Suspect]
     Indication: GENERALISED ANXIETY DISORDER
     Dosage: 100 MG, 1X/DAY
     Dates: start: 201308, end: 20131110
  2. PRISTIQ [Suspect]
     Indication: MAJOR DEPRESSION
  3. PRISTIQ [Suspect]
     Indication: POST-TRAUMATIC STRESS DISORDER
  4. PRISTIQ [Suspect]
     Indication: PHOBIA

REACTIONS (7)
  - Drug withdrawal syndrome [Unknown]
  - Anxiety [Unknown]
  - Abnormal dreams [Unknown]
  - Migraine [Unknown]
  - Dizziness [Unknown]
  - Confusional state [Unknown]
  - Off label use [Unknown]
